FAERS Safety Report 8786453 (Version 1)
Quarter: 2012Q4

REPORT INFORMATION
  Report Type: 
  Country: US (occurrence: US)
  Receive Date: 20120914
  Receipt Date: 20120914
  Transmission Date: 20130627
  Serious: Yes (Other)
  Sender: FDA-Public Use
  Company Number: US-PFIZER INC-2012225545

PATIENT
  Age: 41 Year
  Sex: Male
  Weight: 87.53 kg

DRUGS (2)
  1. CELEBREX [Suspect]
     Indication: INFLAMMATION
     Dosage: 200 mg, 2x/day
     Route: 048
     Dates: start: 2010
  2. CELEBREX [Suspect]
     Indication: PAIN

REACTIONS (2)
  - Cutaneous lupus erythematosus [Unknown]
  - Rash [Not Recovered/Not Resolved]
